FAERS Safety Report 8908318 (Version 1)
Quarter: 2012Q4

REPORT INFORMATION
  Report Type: 
  Country: US (occurrence: US)
  Receive Date: 20121114
  Receipt Date: 20121114
  Transmission Date: 20130627
  Serious: Yes (Other)
  Sender: FDA-Public Use
  Company Number: CHPA2012US023170

PATIENT
  Age: 74 Year
  Sex: Female

DRUGS (13)
  1. EXCEDRIN EXTRA STRENGTH [Suspect]
     Indication: PROPHYLAXIS
     Dosage: Unk, QD
     Route: 048
  2. EXCEDRIN EXTRA STRENGTH [Suspect]
     Dosage: 2 to 4 DF, PRN
     Route: 048
     Dates: start: 1977
  3. TRIAMTEREEN/HYDROCHLOOTTHIAZIDE [Concomitant]
     Indication: HYPERTENSION
     Dosage: Unk, IN THE MORNING
  4. AMLODIPINE [Concomitant]
     Indication: HYPERTENSION
     Dosage: 10 mg, AT NIGHT
  5. DRUG THERAPY NOS [Concomitant]
     Indication: SUPPLEMENTATION THERAPY
     Dosage: Unk, AT NIGHT
  6. VITAMIN B COMPLEX [Concomitant]
     Indication: VITAMIN SUPPLEMENTATION
     Dosage: Unk, Unk
  7. CALCIUM [Concomitant]
     Indication: VITAMIN SUPPLEMENTATION
     Dosage: Unk, AT NIGHT
  8. FLAXSEED OIL [Concomitant]
     Indication: SUPPLEMENTATION THERAPY
     Dosage: Unk, Unk
  9. LOSARTAN [Concomitant]
     Indication: HYPERTENSION
     Dosage: Unk, AT NIGHT
     Dates: start: 201207
  10. MULTIVITAMINS [Concomitant]
     Indication: VITAMIN SUPPLEMENTATION
     Dosage: Unk, Unk
  11. CALCIUM + VITAMIN D [Concomitant]
     Indication: VITAMIN SUPPLEMENTATION
     Dosage: Unk, Unk
  12. CRANBERRY//VACCINIUM MACROCARPON [Concomitant]
     Dosage: Unk, Unk
  13. ACIDOPHILUS [Concomitant]
     Indication: SUPPLEMENTATION THERAPY
     Dosage: Unk, Unk

REACTIONS (10)
  - Non-Hodgkin^s lymphoma [Recovered/Resolved]
  - Cataract [Recovered/Resolved]
  - Macular hole [Recovered/Resolved]
  - Paranasal sinus hypersecretion [Not Recovered/Not Resolved]
  - Arthropathy [Recovered/Resolved]
  - Hypertension [Not Recovered/Not Resolved]
  - Road traffic accident [Recovered/Resolved]
  - Injury [Recovered/Resolved]
  - Drug hypersensitivity [Not Recovered/Not Resolved]
  - Off label use [Unknown]
